FAERS Safety Report 19504132 (Version 2)
Quarter: 2021Q4

REPORT INFORMATION
  Report Type: Spontaneous
  Country: AU (occurrence: AU)
  Receive Date: 20210708
  Receipt Date: 20211026
  Transmission Date: 20220303
  Serious: Yes (Death, Hospitalization, Other)
  Sender: FDA-Public Use
  Company Number: AU-35507-2021-10989

PATIENT
  Age: 55 Year
  Sex: Female

DRUGS (1)
  1. SERTRALINE [Suspect]
     Active Substance: SERTRALINE HYDROCHLORIDE
     Indication: Depression
     Dosage: UNK
     Route: 065

REACTIONS (3)
  - Reversible cerebral vasoconstriction syndrome [Fatal]
  - Brain herniation [Fatal]
  - Brain oedema [Fatal]
